FAERS Safety Report 5859575-8 (Version None)
Quarter: 2008Q3

REPORT INFORMATION
  Report Type: 
  Country: None (occurrence: None)
  Receive Date: 20080827
  Receipt Date: 20080818
  Transmission Date: 20090109
  Serious: Yes (Life-Threatening)
  Sender: FDA-Public Use
  Company Number: B0533996A

PATIENT
  Age: 68 Year
  Sex: Female

DRUGS (2)
  1. ROSIGLITAZONE [Suspect]
     Route: 065
  2. INSULIN [Concomitant]
     Route: 065

REACTIONS (2)
  - ACUTE PULMONARY OEDEMA [None]
  - GENERALISED OEDEMA [None]
